FAERS Safety Report 8914450 (Version 2)
Quarter: 2012Q4

REPORT INFORMATION
  Report Type: Report from Study
  Country: CA (occurrence: CA)
  Receive Date: 20121119
  Receipt Date: 20121207
  Transmission Date: 20130627
  Serious: Yes (Other)
  Sender: FDA-Public Use
  Company Number: CA-JNJFOC-20121105695

PATIENT
  Age: 34 Year
  Sex: Female
  Weight: 60 kg

DRUGS (9)
  1. REMICADE [Suspect]
     Indication: CROHN^S DISEASE
     Dosage: loading dose
     Route: 042
     Dates: start: 20121005
  2. REMICADE [Suspect]
     Indication: CROHN^S DISEASE
     Route: 042
     Dates: end: 20121127
  3. REMICADE [Suspect]
     Indication: CROHN^S DISEASE
     Dosage: loading 2 doses
     Route: 042
     Dates: start: 20121022, end: 20121108
  4. METHOTREXATE [Suspect]
     Indication: PRODUCT USED FOR UNKNOWN INDICATION
     Route: 065
  5. FOLIC ACID [Concomitant]
     Route: 065
  6. METHOTREXATE [Concomitant]
     Route: 048
  7. BENADRYL [Concomitant]
     Indication: PREMEDICATION
     Route: 065
  8. SOLU CORTEF [Concomitant]
     Indication: PREMEDICATION
     Route: 042
     Dates: start: 20121108
  9. BENADRYL [Concomitant]
     Indication: PREMEDICATION
     Route: 042
     Dates: start: 20121108

REACTIONS (14)
  - Arthralgia [Recovering/Resolving]
  - Infusion related reaction [Not Recovered/Not Resolved]
  - Local swelling [Not Recovered/Not Resolved]
  - Hypersensitivity [Unknown]
  - Throat tightness [Unknown]
  - Urticaria [Recovering/Resolving]
  - Ocular hyperaemia [Not Recovered/Not Resolved]
  - Dysphagia [Unknown]
  - Chills [Unknown]
  - Dyspnoea [Not Recovered/Not Resolved]
  - Anxiety [Not Recovered/Not Resolved]
  - Pharyngeal oedema [Not Recovered/Not Resolved]
  - Flushing [Not Recovered/Not Resolved]
  - Joint stiffness [Recovering/Resolving]
